FAERS Safety Report 7089784-4 (Version None)
Quarter: 2010Q4

REPORT INFORMATION
  Report Type: 
  Country: None (occurrence: None)
  Receive Date: 20101108
  Receipt Date: 20101102
  Transmission Date: 20110411
  Serious: Yes (Hospitalization)
  Sender: FDA-Public Use
  Company Number: DE-GENENTECH-309096

PATIENT
  Sex: Female
  Weight: 69 kg

DRUGS (6)
  1. RITUXIMAB [Suspect]
     Indication: RHEUMATOID ARTHRITIS
     Dosage: 1000 MG, UNKNOWN
     Route: 042
     Dates: start: 20090201, end: 20091105
  2. METHOTREXATE [Suspect]
     Indication: RHEUMATOID ARTHRITIS
     Dosage: UNK UNK, UNKNOWN
     Route: 065
     Dates: end: 20090901
  3. DICLOFENAC SODIUM [Concomitant]
     Indication: RHEUMATOID ARTHRITIS
     Dosage: 150 MG, UNKNOWN
     Route: 048
     Dates: end: 20100401
  4. IBUPROFEN [Concomitant]
     Indication: RHEUMATOID ARTHRITIS
     Dosage: 800 MG, UNKNOWN
     Route: 048
     Dates: end: 20100401
  5. TILIDIN [Concomitant]
     Indication: RHEUMATOID ARTHRITIS
     Dosage: 30 GTT, UNKNOWN
     Route: 048
     Dates: start: 20100401
  6. QUENSYL [Concomitant]
     Indication: RHEUMATOID ARTHRITIS
     Dosage: 200 MG, UNKNOWN
     Route: 048

REACTIONS (3)
  - IMPAIRED HEALING [None]
  - STAPHYLOCOCCAL INFECTION [None]
  - THROMBOSIS [None]
